FAERS Safety Report 5717027-X (Version None)
Quarter: 2008Q2

REPORT INFORMATION
  Report Type: 
  Country: None (occurrence: None)
  Receive Date: 20080424
  Receipt Date: 20080415
  Transmission Date: 20081010
  Serious: Yes (Hospitalization)
  Sender: FDA-Public Use
  Company Number: JP-PFIZER INC-2008005542

PATIENT
  Sex: Female

DRUGS (1)
  1. ZITHROMAX [Suspect]
     Indication: PHARYNGITIS
     Route: 048
     Dates: start: 20080113, end: 20080113

REACTIONS (3)
  - FEELING COLD [None]
  - PALLOR [None]
  - TREMOR [None]
